FAERS Safety Report 8307861-4 (Version None)
Quarter: 2012Q2

REPORT INFORMATION
  Report Type: 
  Country: None (occurrence: None)
  Receive Date: 20120424
  Receipt Date: 20120413
  Transmission Date: 20120825
  Serious: Yes (Other)
  Sender: FDA-Public Use
  Company Number: CA-JNJFOC-20120406994

PATIENT
  Sex: Female
  Weight: 95 kg

DRUGS (8)
  1. PREDNISONE TAB [Concomitant]
     Route: 065
  2. FE SULFATE [Concomitant]
     Route: 065
  3. PREVACID [Concomitant]
     Route: 065
  4. LEVOTHYROXINE SODIUM [Concomitant]
     Route: 065
  5. METFORMIN HCL [Concomitant]
     Route: 065
  6. REMICADE [Suspect]
     Indication: CROHN'S DISEASE
     Route: 042
     Dates: start: 20100519
  7. ALLOPURINOL [Concomitant]
     Route: 065
  8. ATACAND [Concomitant]
     Route: 065

REACTIONS (2)
  - GASTROENTERITIS NOROVIRUS [None]
  - JOINT INJURY [None]
